FAERS Safety Report 5491961-0 (Version None)
Quarter: 2007Q4

REPORT INFORMATION
  Report Type: 
  Country: None (occurrence: None)
  Receive Date: 20071022
  Receipt Date: 20071017
  Transmission Date: 20080405
  Serious: Yes (Death)
  Sender: FDA-Public Use
  Company Number: A0607987A

PATIENT
  Age: 76 Year
  Sex: Male
  Weight: 80.5 kg

DRUGS (8)
  1. PAXIL [Suspect]
     Indication: DEPRESSION
     Dosage: 10MG PER DAY
     Route: 048
     Dates: start: 20030411, end: 20030401
  2. MEGACE [Concomitant]
     Dates: start: 20030411
  3. HYDROCHLOROTHIAZIDE [Concomitant]
  4. LOTREL [Concomitant]
  5. COMBIVENT [Concomitant]
  6. CLORAZEPATE DIPOTASSIUM [Concomitant]
  7. PROPRANOLOL HYDROCHLORIDE [Concomitant]
  8. THALIDOMIDE [Concomitant]
     Dates: start: 20020101

REACTIONS (5)
  - COMPLETED SUICIDE [None]
  - SKULL FRACTURE [None]
  - SUBARACHNOID HAEMORRHAGE [None]
  - SUBDURAL HAEMORRHAGE [None]
  - SUICIDAL IDEATION [None]
